FAERS Safety Report 25902243 (Version 1)
Quarter: 2025Q4

REPORT INFORMATION
  Report Type: Spontaneous
  Country: US (occurrence: None)
  Receive Date: 20251009
  Receipt Date: 20251009
  Transmission Date: 20260118
  Serious: Yes (Hospitalization)
  Sender: FDA-CTU
  Company Number: None

PATIENT
  Sex: Male

DRUGS (11)
  1. VYNDAMAX [Suspect]
     Active Substance: TAFAMIDIS
     Route: 048
     Dates: start: 20250131
  2. ATORVASTATIN [Concomitant]
     Active Substance: ATORVASTATIN
  3. BIMATOPROST [Suspect]
     Active Substance: BIMATOPROST
  4. CALCIUM GARB CHW [Concomitant]
  5. EYLEA [Concomitant]
     Active Substance: AFLIBERCEPT
  6. FINASTERIDE [Concomitant]
     Active Substance: FINASTERIDE
  7. GLUCOSAMINE [Concomitant]
     Active Substance: GLUCOSAMINE
  8. ITAMSULOSIN [Concomitant]
  9. lv1TAMIN B-12 [Concomitant]
  10. VITAMIN D-3  1000UNIT [Concomitant]
  11. VITAMIN D-3  2000UNIT [Concomitant]

REACTIONS (2)
  - Anxiety [None]
  - Blindness [None]
